FAERS Safety Report 21247891 (Version 1)
Quarter: 2022Q3

REPORT INFORMATION
  Report Type: Spontaneous
  Country: US (occurrence: US)
  Receive Date: 20220824
  Receipt Date: 20220824
  Transmission Date: 20221026
  Serious: No
  Sender: FDA-Public Use
  Company Number: US-PFIZER INC-202201080414

PATIENT
  Sex: Female

DRUGS (1)
  1. PAXLOVID [Suspect]
     Active Substance: NIRMATRELVIR\RITONAVIR
     Indication: COVID-19 treatment
     Dosage: UNK
     Dates: start: 20220819

REACTIONS (5)
  - Nausea [Unknown]
  - Insomnia [Unknown]
  - Feeding disorder [Unknown]
  - Pain in extremity [Unknown]
  - Feeling abnormal [Unknown]
